FAERS Safety Report 5535371-6 (Version None)
Quarter: 2007Q4

REPORT INFORMATION
  Report Type: 
  Country: None (occurrence: None)
  Receive Date: 20071206
  Receipt Date: 20071123
  Transmission Date: 20080405
  Serious: Yes (Other)
  Sender: FDA-Public Use
  Company Number: US-PFIZER INC-2007076327

PATIENT
  Age: 50 Year
  Sex: Female
  Weight: 62.6 kg

DRUGS (2)
  1. CHANTIX [Suspect]
     Indication: SMOKING CESSATION THERAPY
     Route: 048
  2. VALSARTAN [Concomitant]
     Route: 048

REACTIONS (5)
  - ARTERIOSPASM CORONARY [None]
  - CHEST PAIN [None]
  - DIZZINESS [None]
  - MALAISE [None]
  - MOBILITY DECREASED [None]
